FAERS Safety Report 8370761-8 (Version None)
Quarter: 2012Q2

REPORT INFORMATION
  Report Type: 
  Country: None (occurrence: None)
  Receive Date: 20120518
  Receipt Date: 20120508
  Transmission Date: 20120825
  Serious: Yes (Life-Threatening, Hospitalization)
  Sender: FDA-Public Use
  Company Number: US-PFIZER INC-2012111290

PATIENT
  Sex: Female
  Weight: 90.7 kg

DRUGS (13)
  1. LOMOTIL [Concomitant]
     Indication: DIARRHOEA
     Dosage: 2.5 MG, AS NEEDED
     Route: 048
     Dates: start: 20100101
  2. AXITINIB [Suspect]
     Indication: THYROID CANCER METASTATIC
     Dosage: 3 MG, 2X/DAY
     Route: 048
     Dates: start: 20081008
  3. LEVOXYL [Concomitant]
     Indication: THYROID HORMONE REPLACEMENT THERAPY
     Dosage: 250 MEQ, 1X/DAY
     Route: 048
     Dates: start: 19960101
  4. NORVASC [Concomitant]
     Indication: HYPERTENSION
     Dosage: 5 MG, 1X/DAY
     Route: 048
     Dates: start: 20100101
  5. IMODIUM [Concomitant]
     Indication: DIARRHOEA
     Dosage: 2.4 MG, AS NEEDED
     Route: 048
     Dates: start: 20080101
  6. FISH OIL [Concomitant]
     Indication: BLOOD CHOLESTEROL
  7. SIMVASTATIN [Concomitant]
     Indication: CORONARY ARTERY DISEASE
     Dosage: 40 MG, 1X/DAY
     Route: 048
     Dates: start: 20100101
  8. ACETYLSALICYLIC ACID [Concomitant]
     Indication: CORONARY ARTERY DISEASE
     Dosage: 81 MG, 2X/DAY
     Route: 048
     Dates: start: 20100101
  9. CELEXA [Concomitant]
     Indication: DEPRESSION
     Dosage: 40 MG, 1X/DAY
     Route: 048
     Dates: start: 20080101
  10. ATIVAN [Concomitant]
     Indication: ANXIETY
  11. ZANTAC [Concomitant]
     Indication: GASTROOESOPHAGEAL REFLUX DISEASE
     Dosage: 150 MG, AS NEEDED
     Route: 048
  12. FISH OIL [Concomitant]
     Indication: CORONARY ARTERY DISEASE
     Dosage: 1000 MG, 2X/DAY
     Route: 048
     Dates: start: 20110101
  13. ATIVAN [Concomitant]
     Indication: NAUSEA
     Dosage: 1-2 MG,AS NEEDED
     Route: 048
     Dates: start: 20100101

REACTIONS (1)
  - CARDIO-RESPIRATORY ARREST [None]
